FAERS Safety Report 9980675 (Version 4)
Quarter: 2014Q2

REPORT INFORMATION
  Report Type: Spontaneous
  Country: US (occurrence: US)
  Receive Date: 20140307
  Receipt Date: 20140613
  Transmission Date: 20141212
  Serious: Yes (Disabling)
  Sender: FDA-Public Use
  Company Number: US-ASTRAZENECA-2014SE14641

PATIENT
  Age: 69 Year
  Sex: Female
  Weight: 72.1 kg

DRUGS (4)
  1. CRESTOR [Suspect]
     Indication: BLOOD CHOLESTEROL INCREASED
     Route: 048
     Dates: start: 20120509, end: 20120713
  2. CRESTOR [Suspect]
     Indication: CARDIOMEGALY
     Route: 048
     Dates: start: 20120509, end: 20120713
  3. BENECAR HCTZ [Concomitant]
     Indication: HYPERTENSION
     Route: 048
     Dates: start: 201205
  4. ARMOUR THYROID [Concomitant]
     Indication: THYROID DISORDER
     Dates: start: 2014

REACTIONS (26)
  - Foot deformity [Not Recovered/Not Resolved]
  - Joint swelling [Not Recovered/Not Resolved]
  - Joint effusion [Not Recovered/Not Resolved]
  - Pain [Not Recovered/Not Resolved]
  - Back pain [Not Recovered/Not Resolved]
  - Peripheral swelling [Not Recovered/Not Resolved]
  - Gait disturbance [Not Recovered/Not Resolved]
  - Burning sensation [Not Recovered/Not Resolved]
  - Activities of daily living impaired [Unknown]
  - Balance disorder [Unknown]
  - Arthropathy [Unknown]
  - Foot deformity [Unknown]
  - Bone pain [Unknown]
  - Muscle strain [Unknown]
  - Impaired work ability [Unknown]
  - Fall [Unknown]
  - Weight increased [Unknown]
  - Muscular weakness [Not Recovered/Not Resolved]
  - Arthralgia [Not Recovered/Not Resolved]
  - Pain in extremity [Unknown]
  - Muscle disorder [Unknown]
  - Asthenia [Unknown]
  - Muscular weakness [Unknown]
  - Arthralgia [Unknown]
  - Lethargy [Unknown]
  - Memory impairment [Unknown]
